FAERS Safety Report 10762928 (Version 1)
Quarter: 2015Q1

REPORT INFORMATION
  Report Type: Spontaneous
  Country: US (occurrence: US)
  Receive Date: 20150204
  Receipt Date: 20150204
  Transmission Date: 20150721
  Serious: Yes (Death)
  Sender: FDA-Public Use
  Company Number: US-PERRIGO-15US001044

PATIENT
  Age: 56 Year
  Sex: Female

DRUGS (5)
  1. PROMETHAZINE HYDROCHLORIDE. [Suspect]
     Active Substance: PROMETHAZINE HYDROCHLORIDE
     Indication: COMPLETED SUICIDE
     Dosage: UNK, UNK
     Route: 048
  2. ACETAMINOPHEN W/HYDROCODONE [Suspect]
     Active Substance: ACETAMINOPHEN\HYDROCODONE
     Indication: COMPLETED SUICIDE
     Dosage: UNK, UNK
     Route: 048
  3. ATENOLOL. [Suspect]
     Active Substance: ATENOLOL
     Indication: COMPLETED SUICIDE
     Dosage: UNK, UNK
     Route: 048
  4. DOXEPIN [Suspect]
     Active Substance: DOXEPIN
     Indication: COMPLETED SUICIDE
     Dosage: UNK, UNK
     Route: 048
  5. LORAZEPAM CONCENTRATE RX 2 MG/ML 1J9 [Suspect]
     Active Substance: LORAZEPAM
     Indication: COMPLETED SUICIDE
     Dosage: UNK, UNK
     Route: 048

REACTIONS (1)
  - Death [Fatal]
